FAERS Safety Report 5349565-6 (Version None)
Quarter: 2007Q2

REPORT INFORMATION
  Report Type: 
  Country: None (occurrence: None)
  Receive Date: 20070510
  Receipt Date: 20070328
  Transmission Date: 20071010
  Serious: No
  Sender: FDA-Public Use
  Company Number: WAES 0703USA05344

PATIENT
  Age: 34 Year
  Sex: Male

DRUGS (9)
  1. ZOLINZA [Suspect]
     Indication: T-CELL LYMPHOMA
     Dosage: 400MG/DAILY/PO
     Route: 048
     Dates: start: 20070301
  2. AMBIEN [Concomitant]
  3. BENADRYL [Concomitant]
  4. NEOSPORIN FIRST AID OINTMENT [Concomitant]
  5. NEUPOGEN [Concomitant]
  6. BETAMETHASONE [Concomitant]
  7. CYPROHEPTADINE HCL [Concomitant]
  8. TRIAMCINOLONE [Concomitant]
  9. WARFARIN SODIUM [Concomitant]

REACTIONS (1)
  - INTERNATIONAL NORMALISED RATIO INCREASED [None]
